FAERS Safety Report 9506065 (Version 1)
Quarter: 2013Q1

REPORT INFORMATION
  Report Type: Spontaneous
  Country: US (occurrence: None)
  Receive Date: 20130206
  Receipt Date: 20130206
  Transmission Date: 20140127
  Serious: Yes (Hospitalization)
  Sender: FDA-Public Use
  Company Number: DAV-AE-MTX-12-12

PATIENT
  Age: 57 Year
  Sex: Female

DRUGS (22)
  1. METHOTREXATE [Suspect]
     Indication: RHEUMATOID ARTHRITIS
     Route: 048
  2. HUMIRA (ADALIMUMAB) OPEN LABEL [Concomitant]
  3. FOLIC ACID [Concomitant]
  4. CARTIPRO (ASCORIC ACID, GLUCISAMINE SULFATE0 [Concomitant]
  5. VITAMIN B COMPLEX [Concomitant]
  6. L-THYROXINE SODIUM [Concomitant]
  7. LAMOTRIGINE [Concomitant]
  8. SEROGUEL XR [Concomitant]
  9. CELECOXIB [Concomitant]
  10. ASA [Concomitant]
  11. METHOCARBAMOL [Concomitant]
  12. MULTIVITAMIN [Concomitant]
  13. FISH OIL [Concomitant]
  14. ERGOCALCIFEROL [Concomitant]
  15. HYDROCODONE [Concomitant]
  16. CALCIUM [Concomitant]
  17. CEFIXIME [Concomitant]
  18. PARACETAMOL [Concomitant]
  19. CLOBETASOL [Concomitant]
  20. PROPIONATE [Concomitant]
  21. AMOXICILLIN [Concomitant]
  22. NEBIVOLOL HC1 [Concomitant]

REACTIONS (1)
  - Hypotension [None]
